FAERS Safety Report 8948371 (Version 2)
Quarter: 2012Q4

REPORT INFORMATION
  Report Type: Spontaneous
  Country: US (occurrence: None)
  Receive Date: 20121126
  Receipt Date: 20121130
  Transmission Date: 20130627
  Serious: Yes (Other)
  Sender: FDA-Public Use
  Company Number: 2012AP004013

PATIENT
  Age: 42 Year
  Sex: Female

DRUGS (5)
  1. QUETIAPINE FUMARATE [Suspect]
     Indication: DEPRESSIVE DISORDER
  2. CITALOPRAM [Suspect]
     Indication: DEPRESSIVE DISORDER
  3. ONDANSETRON [Suspect]
     Indication: DRUG USE FOR UNKNOWN INDICATION
  4. AMPHETAMINE [Suspect]
  5. ADDERALL [Suspect]

REACTIONS (3)
  - Serotonin syndrome [None]
  - Facial bones fracture [None]
  - Blood pressure fluctuation [None]
